FAERS Safety Report 11128295 (Version 2)
Quarter: 2015Q4

REPORT INFORMATION
  Report Type: Spontaneous
  Country: DK (occurrence: FR)
  Receive Date: 20150521
  Receipt Date: 20151023
  Transmission Date: 20160304
  Serious: Yes (Other)
  Sender: FDA-Public Use
  Company Number: FR-FRI-1000076765

PATIENT
  Age: 73 Year
  Sex: Male

DRUGS (5)
  1. FLECAINE [Concomitant]
     Active Substance: FLECAINIDE
     Indication: ARRHYTHMIA
     Dosage: 10 MG/ML
     Route: 065
  2. PRAVASTATIN [Concomitant]
     Active Substance: PRAVASTATIN\PRAVASTATIN SODIUM
     Indication: HYPERCHOLESTEROLAEMIA
     Dosage: 1 DF
     Route: 065
  3. PREVISCAN [Concomitant]
     Active Substance: FLUINDIONE
     Indication: ARRHYTHMIA
     Dosage: 1.5 DF
     Route: 065
  4. REQUIP [Concomitant]
     Active Substance: ROPINIROLE HYDROCHLORIDE
     Indication: DEMENTIA ALZHEIMER^S TYPE
     Route: 065
  5. MEMANTINE. [Suspect]
     Active Substance: MEMANTINE
     Indication: DEMENTIA WITH LEWY BODIES
     Dosage: 1 DF
     Route: 048
     Dates: start: 20150317, end: 20150413

REACTIONS (2)
  - Product use issue [Recovered/Resolved]
  - Loss of consciousness [Recovered/Resolved]

NARRATIVE: CASE EVENT DATE: 20150317
